FAERS Safety Report 4892751-X (Version None)
Quarter: 2005Q4

REPORT INFORMATION
  Report Type: 
  Country: None (occurrence: None)
  Receive Date: 20051220
  Receipt Date: 20051104
  Transmission Date: 20060501
  Serious: Yes (Other)
  Sender: FDA-Public Use
  Company Number: 424114

PATIENT
  Sex: Female

DRUGS (2)
  1. BONIVA [Suspect]
     Indication: DRUG USE FOR UNKNOWN INDICATION
     Dosage: ORAL
     Route: 048
  2. PRILOSEC [Concomitant]

REACTIONS (9)
  - ABDOMINAL PAIN UPPER [None]
  - ADVERSE EVENT [None]
  - APHAGIA [None]
  - BONE PAIN [None]
  - BURN OESOPHAGEAL [None]
  - CHEST PAIN [None]
  - PAIN IN EXTREMITY [None]
  - SHOULDER PAIN [None]
  - THERMAL BURN [None]
